FAERS Safety Report 5734654-4 (Version None)
Quarter: 2008Q2

REPORT INFORMATION
  Report Type: 
  Country: None (occurrence: None)
  Receive Date: 20080512
  Receipt Date: 20080502
  Transmission Date: 20081010
  Serious: Yes (Hospitalization)
  Sender: FDA-Public Use
  Company Number: PHHO2008FR01761

PATIENT
  Age: 62 Year
  Sex: Male

DRUGS (2)
  1. MYFORTIC [Suspect]
     Indication: RENAL TRANSPLANT
     Dosage: 1080 MG, BID
     Route: 048
     Dates: start: 20071016
  2. CORTICOSTEROIDS [Concomitant]

REACTIONS (2)
  - PANCYTOPENIA [None]
  - PERINEPHRIC ABSCESS [None]
